FAERS Safety Report 16870218 (Version 1)
Quarter: 2019Q3

REPORT INFORMATION
  Report Type: Spontaneous
  Country: CO (occurrence: CO)
  Receive Date: 20190930
  Receipt Date: 20190930
  Transmission Date: 20191005
  Serious: Yes (Death, Hospitalization, Other)
  Sender: FDA-Public Use
  Company Number: CO-009507513-1907COL015691

PATIENT
  Sex: Female

DRUGS (3)
  1. KEYTRUDA [Suspect]
     Active Substance: PEMBROLIZUMAB
     Indication: NON-SMALL CELL LUNG CANCER
     Dosage: 200MG/EVERY 21 DAYS
     Dates: end: 2019
  2. KEYTRUDA [Suspect]
     Active Substance: PEMBROLIZUMAB
     Dosage: 200MG/ EVERY 21 DAYS
     Dates: start: 2019, end: 2019
  3. KEYTRUDA [Suspect]
     Active Substance: PEMBROLIZUMAB
     Dosage: 200MG/ EVERY 21 DAYS
     Dates: start: 2019

REACTIONS (3)
  - Pneumonitis [Unknown]
  - Death [Fatal]
  - Skin reaction [Unknown]

NARRATIVE: CASE EVENT DATE: 2019
